FAERS Safety Report 9376046 (Version 1)
Quarter: 2013Q2

REPORT INFORMATION
  Report Type: Spontaneous
  Country: US (occurrence: None)
  Receive Date: 20130628
  Receipt Date: 20130628
  Transmission Date: 20140414
  Serious: Yes (Other)
  Sender: FDA-Public Use
  Company Number: None

PATIENT
  Age: 53 Year
  Sex: 0
  Weight: 91.7 kg

DRUGS (1)
  1. OCTAGAM [Suspect]
     Indication: POLYMYOSITIS
     Dosage: 75 GRAM DAILY TIMES 2 DOSES
     Route: 042
     Dates: start: 20130619, end: 20130620

REACTIONS (2)
  - Chest discomfort [None]
  - Infusion related reaction [None]
